FAERS Safety Report 15729020 (Version 1)
Quarter: 2018Q4

REPORT INFORMATION
  Report Type: Spontaneous
  Country: DK (occurrence: DK)
  Receive Date: 20181217
  Receipt Date: 20181217
  Transmission Date: 20190205
  Serious: Yes (Hospitalization)
  Sender: FDA-Public Use
  Company Number: DK-MYLANLABS-2018M1091626

PATIENT
  Age: 28 Year
  Sex: Female

DRUGS (2)
  1. LAMOTRIGINE. [Suspect]
     Active Substance: LAMOTRIGINE
     Indication: SCHIZOPHRENIA
     Route: 065
  2. QUETIAPINE. [Concomitant]
     Active Substance: QUETIAPINE
     Indication: PSYCHOTHERAPY
     Route: 065

REACTIONS (2)
  - Pulmonary embolism [Unknown]
  - Pneumonitis [Recovered/Resolved]
